FAERS Safety Report 8043407-6 (Version None)
Quarter: 2012Q1

REPORT INFORMATION
  Report Type: 
  Country: None (occurrence: None)
  Receive Date: 20120112
  Receipt Date: 20120106
  Transmission Date: 20120608
  Serious: Yes (Other)
  Sender: FDA-Public Use
  Company Number: PHHY2012PY001315

PATIENT
  Age: 78 Year
  Sex: Male

DRUGS (2)
  1. PREDNISONE TAB [Suspect]
     Indication: PRURITUS
     Dosage: 75 MG, UNK
  2. BETAMETHASONE [Suspect]
     Route: 061

REACTIONS (8)
  - SKIN FISSURES [None]
  - SKIN LESION [None]
  - ERYTHEMA [None]
  - ACARODERMATITIS [None]
  - SKIN HYPERTROPHY [None]
  - SCAB [None]
  - HYPERPLASIA [None]
  - CREPITATIONS [None]
